FAERS Safety Report 7668401-6 (Version None)
Quarter: 2011Q3

REPORT INFORMATION
  Report Type: 
  Country: None (occurrence: None)
  Receive Date: 20110808
  Receipt Date: 20110804
  Transmission Date: 20111222
  Serious: Yes (Death, Hospitalization)
  Sender: FDA-Public Use
  Company Number: DE-ELI_LILLY_AND_COMPANY-DE201105004051

PATIENT
  Sex: Male

DRUGS (18)
  1. GEMCITABINE HYDROCHLORIDE [Suspect]
     Indication: NON-SMALL CELL LUNG CANCER
     Dosage: 1000 MG/M2, D1+8 EVERY 3 WEEKS
     Route: 042
     Dates: start: 20110401
  2. DURAGESIC-100 [Concomitant]
     Dosage: 75 DF, EVERY 3 DAYS
  3. RAMIPRIL [Concomitant]
     Dosage: 5 MG, QD
     Route: 048
  4. GRANISETRON [Concomitant]
     Route: 042
  5. TPN ELECTROLYTES IN PLASTIC CONTAINER [Concomitant]
     Dosage: 1000 ML, UNK
     Route: 042
  6. FREKAVIT WASSERLOESLICH [Concomitant]
     Route: 042
  7. CETUXIMAB [Suspect]
     Indication: NON-SMALL CELL LUNG CANCER
     Dosage: 400 MG/M2, UNK
     Route: 042
     Dates: start: 20110401
  8. MELPERON [Concomitant]
  9. MCP [Concomitant]
     Dosage: 20 DF, TID
  10. HALDOL [Concomitant]
     Dosage: 10 GTT, TID
  11. VITALIPID                          /01289701/ [Concomitant]
     Route: 042
  12. JONOSTERIL [Concomitant]
     Dosage: 1000 ML, UNK
     Route: 042
  13. ARIXTRA [Concomitant]
     Dosage: 7.5 MG, UNK
     Route: 058
  14. DEXAMETHASONE [Concomitant]
     Route: 042
  15. CETUXIMAB [Suspect]
     Dosage: 250 MG/M2, WEEKLY (1/W)
     Route: 042
  16. PANTOPRAZOLE [Concomitant]
     Dosage: 20 MG, QD
     Route: 048
  17. NOVALGINE [Concomitant]
     Dosage: 20 GTT, TID
  18. LIPOVENOES                         /00272201/ [Concomitant]

REACTIONS (3)
  - LUNG INFILTRATION [None]
  - FATIGUE [None]
  - PARANEOPLASTIC SYNDROME [None]
